FAERS Safety Report 5724567-6 (Version None)
Quarter: 2008Q2

REPORT INFORMATION
  Report Type: 
  Country: None (occurrence: None)
  Receive Date: 20080430
  Receipt Date: 20080430
  Transmission Date: 20081010
  Serious: Yes (Other)
  Sender: FDA-Public Use
  Company Number: None

PATIENT
  Sex: Male
  Weight: 63.5036 kg

DRUGS (2)
  1. OXYCODONE AND ACETAMINOPHEN [Suspect]
     Indication: GASTROINTESTINAL DISORDER
     Dosage: 150 TABLETS IN 30 DAYS
     Dates: start: 20061208
  2. OXYCODONE AND ACETAMINOPHEN [Suspect]
     Indication: PAIN
     Dosage: 150 TABLETS IN 30 DAYS
     Dates: start: 20061208

REACTIONS (3)
  - DRUG EFFECT DECREASED [None]
  - DYSPEPSIA [None]
  - THERAPEUTIC RESPONSE UNEXPECTED WITH DRUG SUBSTITUTION [None]
